FAERS Safety Report 9643383 (Version 2)
Quarter: 2013Q4

REPORT INFORMATION
  Report Type: Spontaneous
  Country: HU (occurrence: HU)
  Receive Date: 20131024
  Receipt Date: 20131031
  Transmission Date: 20140711
  Serious: Yes (Other)
  Sender: FDA-Public Use
  Company Number: HU-PFIZER INC-2013299843

PATIENT
  Age: 54 Year
  Sex: Female

DRUGS (2)
  1. SULFASALAZINE [Suspect]
     Indication: ARTHROPATHY
  2. LEFLUNOMIDE [Suspect]
     Indication: ARTHROPATHY

REACTIONS (2)
  - Arthrodesis [Unknown]
  - Joint destruction [Unknown]
